FAERS Safety Report 23274922 (Version 7)
Quarter: 2024Q2

REPORT INFORMATION
  Report Type: Report from Study
  Country: KR (occurrence: KR)
  Receive Date: 20231208
  Receipt Date: 20240513
  Transmission Date: 20240716
  Serious: Yes (Hospitalization, Other)
  Sender: FDA-Public Use
  Company Number: KR-Korea IPSEN-2023-26918

PATIENT

DRUGS (4)
  1. CABOZANTINIB [Suspect]
     Active Substance: CABOZANTINIB
     Indication: Renal cell carcinoma
     Dosage: 60 MG, QD
     Route: 048
     Dates: start: 20230515, end: 20240212
  2. CABOZANTINIB [Suspect]
     Active Substance: CABOZANTINIB
     Dosage: 60 MG, QD
     Route: 048
     Dates: start: 20240214
  3. Trisone kit [Concomitant]
     Indication: Infection prophylaxis
     Dosage: 2 G, QD
     Route: 048
     Dates: start: 20240213, end: 20240216
  4. CEPOXETIL TAB [Concomitant]
     Indication: Infection prophylaxis
     Dosage: 1 TABLET, BID
     Route: 048
     Dates: start: 20240216, end: 20240222

REACTIONS (2)
  - Neuropathy peripheral [Not Recovered/Not Resolved]
  - Pyrexia [Recovered/Resolved]

NARRATIVE: CASE EVENT DATE: 20230710
